FAERS Safety Report 18528467 (Version 1)
Quarter: 2020Q4

REPORT INFORMATION
  Report Type: Spontaneous
  Country: US (occurrence: US)
  Receive Date: 20201120
  Receipt Date: 20201120
  Transmission Date: 20210114
  Serious: Yes (Other)
  Sender: FDA-Public Use
  Company Number: US-PURDUE-USA-2020-0165087

PATIENT
  Sex: Female

DRUGS (2)
  1. HYDROCODONE BITARTRATE AND ACETAMINOPHEN [Suspect]
     Active Substance: ACETAMINOPHEN\HYDROCODONE BITARTRATE
     Indication: TOOTH INFECTION
     Dosage: UNK
     Route: 048
  2. OXYCODONE/ ACETAMINOPHEN TABLETS [Suspect]
     Active Substance: ACETAMINOPHEN\OXYCODONE HYDROCHLORIDE
     Indication: TOOTH INFECTION
     Dosage: UNK
     Route: 048

REACTIONS (9)
  - Contusion [Unknown]
  - Illness [Unknown]
  - Drug dependence [Unknown]
  - Gastrointestinal haemorrhage [Unknown]
  - Ovarian cyst [Unknown]
  - Drug abuse [Unknown]
  - Ulcer [Unknown]
  - Fall [Unknown]
  - Unevaluable event [Unknown]

NARRATIVE: CASE EVENT DATE: 2005
